FAERS Safety Report 5238961-3 (Version None)
Quarter: 2007Q1

REPORT INFORMATION
  Report Type: 
  Country: None (occurrence: None)
  Receive Date: 20070215
  Receipt Date: 20070212
  Transmission Date: 20070707
  Serious: Yes (Hospitalization)
  Sender: FDA-Public Use
  Company Number: US-ALLERGAN-0701484US

PATIENT
  Age: 46 Year
  Sex: Male

DRUGS (1)
  1. BOTOX [Suspect]
     Indication: HYPERHIDROSIS
     Dosage: UNK, SINGLE
     Dates: start: 20051029, end: 20051029

REACTIONS (2)
  - LOCAL SWELLING [None]
  - WHITE BLOOD CELL COUNT INCREASED [None]
